FAERS Safety Report 10173559 (Version 1)
Quarter: 2014Q2

REPORT INFORMATION
  Report Type: Spontaneous
  Country: US (occurrence: US)
  Receive Date: 20140515
  Receipt Date: 20140515
  Transmission Date: 20141212
  Serious: No
  Sender: FDA-Public Use
  Company Number: US-PFIZER INC-2014133050

PATIENT
  Age: 55 Year
  Sex: Female
  Weight: 122.45 kg

DRUGS (4)
  1. LYRICA [Suspect]
     Indication: PERIPHERAL SWELLING
     Dosage: 100 MG, 3X/DAY
     Dates: start: 20140322, end: 201404
  2. LYRICA [Suspect]
     Indication: HYPOAESTHESIA
  3. GLUCOTROL [Concomitant]
     Indication: DIABETES MELLITUS
     Dosage: UNK, DAILY
  4. ACCUPRIL [Concomitant]
     Indication: HYPERTENSION
     Dosage: 40 MG, DAILY

REACTIONS (1)
  - Peripheral swelling [Not Recovered/Not Resolved]
